FAERS Safety Report 9020105 (Version 1)
Quarter: 2013Q1

REPORT INFORMATION
  Report Type: Spontaneous
  Country: US (occurrence: US)
  Receive Date: 20130119
  Receipt Date: 20130119
  Transmission Date: 20140127
  Serious: No
  Sender: FDA-Public Use
  Company Number: US-ALLERGAN-1210922US

PATIENT
  Age: 48 Year
  Sex: Female

DRUGS (9)
  1. BOTOX? [Suspect]
     Indication: MIGRAINE
     Dosage: UNK, SINGLE
     Route: 030
     Dates: start: 20120803, end: 20120803
  2. VIT E, VIT B12, MAGNESIUM, CALCIUM WITH VIT D [Concomitant]
     Indication: NUTRITIONAL SUPPLEMENTATION
  3. DIAZEPAM [Concomitant]
     Indication: MUSCLE SPASMS
     Dosage: UNK UNK, TID
  4. HYDROCODONE [Concomitant]
     Indication: BACK PAIN
     Dosage: 7.5 MG, QID
  5. BENADRYL                           /00000402/ [Concomitant]
     Indication: HYPERSENSITIVITY
     Dosage: 25 MG, PRN
  6. NASACORT [Concomitant]
     Indication: HYPERSENSITIVITY
     Dosage: UNK UNK, PRN
  7. ZINC, OMEGA 3 FISH OIL [Concomitant]
     Indication: NUTRITIONAL SUPPLEMENTATION
  8. NICORETTE [Concomitant]
     Indication: EX-TOBACCO USER
  9. LIDODERM PATCHES [Concomitant]
     Indication: BACK PAIN

REACTIONS (12)
  - Haemangioma [Unknown]
  - Injection site swelling [Unknown]
  - Injection site bruising [Unknown]
  - Asthenia [Unknown]
  - Dysstasia [Unknown]
  - Headache [Unknown]
  - Neck pain [Unknown]
  - Rash [Unknown]
  - Dizziness [Unknown]
  - Swelling face [Unknown]
  - Headache [Unknown]
  - Haemangioma [Unknown]
